FAERS Safety Report 18256239 (Version 2)
Quarter: 2020Q3

REPORT INFORMATION
  Report Type: Spontaneous
  Country: NL (occurrence: NL)
  Receive Date: 20200911
  Receipt Date: 20200914
  Transmission Date: 20201103
  Serious: Yes (Other)
  Sender: FDA-Public Use
  Company Number: NL-TEVA-2020-NL-1825209

PATIENT
  Age: 62 Year
  Sex: Male
  Weight: 81 kg

DRUGS (4)
  1. PERINDOPRIL TABLET  5MG (ARGININE) / BRAND NAME NOT SPECIFIED [Concomitant]
     Dosage: 5 MG, THERAPY START DATE AND END DATE: ASKED BUT UNKNOWN
  2. PREDNISOLON TABLET  5MG / BRAND NAME NOT SPECIFIED [Suspect]
     Active Substance: PREDNISOLONE
     Indication: POLYMYALGIA RHEUMATICA
     Dosage: 15 MILLIGRAM DAILY; NOW 6 WEEK DAILY DOSE 15 MG, 1 X PER DAY 3 PIECES (15 MG),
     Dates: start: 20200414
  3. HYDROCHLOORTHIAZIDE / BRAND NAME NOT SPECIFIED [Concomitant]
     Dosage: THERAPY START DATE AND END DATE: ASKED BUT UNKNOWN
  4. PREDNISOLON TABLET  5MG / BRAND NAME NOT SPECIFIED [Suspect]
     Active Substance: PREDNISOLONE
     Indication: SERONEGATIVE ARTHRITIS

REACTIONS (1)
  - Thrombosis [Not Recovered/Not Resolved]

NARRATIVE: CASE EVENT DATE: 20200814
